FAERS Safety Report 20336992 (Version 1)
Quarter: 2022Q1

REPORT INFORMATION
  Report Type: Spontaneous
  Country: US (occurrence: US)
  Receive Date: 20220114
  Receipt Date: 20220114
  Transmission Date: 20220424
  Serious: Yes (Death, Hospitalization, Other)
  Sender: FDA-Public Use
  Company Number: US-GLAXOSMITHKLINE-US2018GSK236065

PATIENT
  Age: 13 Year
  Sex: Female

DRUGS (1)
  1. IBUPROFEN [Suspect]
     Active Substance: IBUPROFEN
     Indication: Product used for unknown indication
     Dosage: UNK
     Route: 048

REACTIONS (15)
  - Completed suicide [Fatal]
  - Toxicity to various agents [Fatal]
  - Brain injury [Unknown]
  - Pulmonary congestion [Unknown]
  - Cerebral ischaemia [Unknown]
  - Brain hypoxia [Unknown]
  - Cardiac arrest [Unknown]
  - Haematochezia [Unknown]
  - Unresponsive to stimuli [Unknown]
  - Bradycardia [Unknown]
  - Rectal haemorrhage [Unknown]
  - Vomiting [Unknown]
  - Hypotension [Unknown]
  - Hyperthermia [Unknown]
  - Intentional overdose [Unknown]

NARRATIVE: CASE EVENT DATE: 20170101
